FAERS Safety Report 19547965 (Version 2)
Quarter: 2021Q3

REPORT INFORMATION
  Report Type: Spontaneous
  Country: US (occurrence: US)
  Receive Date: 20210714
  Receipt Date: 20210806
  Transmission Date: 20211014
  Serious: Yes (Other)
  Sender: FDA-Public Use
  Company Number: US-BTGSP-US-BTGSP-21-0091

PATIENT
  Age: 64 Year
  Sex: Female

DRUGS (1)
  1. CROFAB [Suspect]
     Active Substance: CROTALIDAE POLYVALENT IMMUNE FAB (OVINE)
     Indication: SNAKE BITE
     Dosage: 6 VIALS
     Route: 065
     Dates: start: 20210704, end: 20210704

REACTIONS (2)
  - Inappropriate schedule of product administration [Unknown]
  - Swelling [Unknown]

NARRATIVE: CASE EVENT DATE: 20210705
